FAERS Safety Report 8618884-X (Version None)
Quarter: 2012Q3

REPORT INFORMATION
  Report Type: 
  Country: None (occurrence: None)
  Receive Date: 20120816
  Receipt Date: 20120816
  Transmission Date: 20120928
  Serious: No
  Sender: FDA-Public Use
  Company Number: None

PATIENT
  Age: 24 Year
  Sex: Female
  Weight: 58.9676 kg

DRUGS (2)
  1. CEFUROXIME AXETIL [Suspect]
     Indication: INFECTION
     Dosage: 250 MG TWICE DAILY PO
     Route: 048
     Dates: start: 20120707, end: 20120716
  2. CEFUROXIME AXETIL [Suspect]
     Indication: LYMPHADENOPATHY
     Dosage: 250 MG TWICE DAILY PO
     Route: 048
     Dates: start: 20120707, end: 20120716

REACTIONS (1)
  - PHOTOSENSITIVITY REACTION [None]
